FAERS Safety Report 8557715-3 (Version None)
Quarter: 2012Q2

REPORT INFORMATION
  Report Type: 
  Country: None (occurrence: None)
  Receive Date: 20120418
  Receipt Date: 20110329
  Transmission Date: 20120825
  Serious: Yes (Hospitalization)
  Sender: FDA-Public Use
  Company Number: PHHY2011US26253

PATIENT
  Sex: Male

DRUGS (2)
  1. DIOVAN HCT [Suspect]
  2. LISINOPRIL [Suspect]

REACTIONS (3)
  - SINUSITIS [None]
  - COUGH [None]
  - POLLAKIURIA [None]
